FAERS Safety Report 22057817 (Version 1)
Quarter: 2023Q1

REPORT INFORMATION
  Report Type: Report from Study
  Country: US (occurrence: US)
  Receive Date: 20230303
  Receipt Date: 20230303
  Transmission Date: 20230418
  Serious: No
  Sender: FDA-Public Use
  Company Number: US-ORG100014127-2022000573

PATIENT
  Age: 42 Year
  Sex: Female

DRUGS (8)
  1. METOPIRONE [Suspect]
     Active Substance: METYRAPONE
     Indication: Pituitary-dependent Cushing^s syndrome
     Dosage: 01 CAPSULE TWICE DAILY
     Route: 048
     Dates: start: 20220421
  2. METOPIRONE [Suspect]
     Active Substance: METYRAPONE
     Indication: Pituitary-dependent Cushing^s syndrome
     Dosage: TAKE 2 CAPSULES BY MOUTH THREE TIMES DAILY
     Dates: start: 2022
  3. CETIRIZINE TAB 10MG [Concomitant]
     Indication: Product used for unknown indication
  4. Clonidine tab 0.1 MG [Concomitant]
     Indication: Product used for unknown indication
  5. D3 TAB 2000 UNIT [Concomitant]
     Indication: Product used for unknown indication
  6. LOSARTAN POT TAB 25 MG [Concomitant]
     Indication: Product used for unknown indication
  7. SOTALOL HCL TAB 160 MG [Concomitant]
     Indication: Product used for unknown indication
  8. MULTIVITAMIN TAB [Concomitant]
     Indication: Product used for unknown indication

REACTIONS (6)
  - Hot flush [Not Recovered/Not Resolved]
  - Muscle spasms [Not Recovered/Not Resolved]
  - Nausea [Not Recovered/Not Resolved]
  - Vomiting [Not Recovered/Not Resolved]
  - Headache [Not Recovered/Not Resolved]
  - Off label use [Not Recovered/Not Resolved]

NARRATIVE: CASE EVENT DATE: 20220421
